FAERS Safety Report 16653865 (Version 1)
Quarter: 2019Q3

REPORT INFORMATION
  Report Type: Spontaneous
  Country: US (occurrence: US)
  Receive Date: 20190731
  Receipt Date: 20190731
  Transmission Date: 20191004
  Serious: Yes (Death)
  Sender: FDA-Public Use
  Company Number: US-ANIPHARMA-2019-US-012641

PATIENT
  Age: 78 Year
  Sex: Male

DRUGS (2)
  1. MORPHINE SULFATE ORAL SOLUTION (NON-SPECIFIC) [Suspect]
     Active Substance: MORPHINE SULFATE
     Indication: PAIN
  2. METFORMIN [Suspect]
     Active Substance: METFORMIN HYDROCHLORIDE
     Indication: DIABETES MELLITUS
     Dosage: 500 MG TWICE DAILY

REACTIONS (3)
  - Acute kidney injury [Fatal]
  - Lactic acidosis [Fatal]
  - Death [Fatal]
